FAERS Safety Report 24783712 (Version 4)
Quarter: 2025Q4

REPORT INFORMATION
  Report Type: Spontaneous
  Country: US (occurrence: US)
  Receive Date: 20241227
  Receipt Date: 20251216
  Transmission Date: 20260117
  Serious: Yes (Other)
  Sender: BIOMARIN
  Company Number: US-SA-2024SA380137

PATIENT
  Age: 6 Year
  Sex: Female

DRUGS (3)
  1. ALDURAZYME [Suspect]
     Active Substance: LARONIDASE
     Indication: Mucopolysaccharidosis I
     Dosage: 14.5 MG, QW
     Dates: start: 202408, end: 2024
  2. ALDURAZYME [Suspect]
     Active Substance: LARONIDASE
     Dosage: 14.5 MG, QW
     Dates: end: 202505
  3. ALDURAZYME [Suspect]
     Active Substance: LARONIDASE
     Dosage: 14.5 MG, QW
     Dates: start: 2025

REACTIONS (5)
  - Bacteraemia [Recovered/Resolved]
  - Pyrexia [Recovered/Resolved]
  - Pneumonia [Unknown]
  - Gastroenteritis viral [Unknown]
  - Malaise [Unknown]

NARRATIVE: CASE EVENT DATE: 20240101
